FAERS Safety Report 25436343 (Version 1)
Quarter: 2025Q2

REPORT INFORMATION
  Report Type: Spontaneous
  Country: US (occurrence: US)
  Receive Date: 20250614
  Receipt Date: 20250614
  Transmission Date: 20250716
  Serious: No
  Sender: ROCHE
  Company Number: US-ROCHE-10000309675

PATIENT
  Sex: Female

DRUGS (5)
  1. VABYSMO [Suspect]
     Active Substance: FARICIMAB-SVOA
     Indication: Retinal vein occlusion
     Dosage: IN LEFT EYE
     Route: 031
  2. VABYSMO [Suspect]
     Active Substance: FARICIMAB-SVOA
     Dosage: IN LEFT EYE
     Route: 031
  3. VABYSMO [Suspect]
     Active Substance: FARICIMAB-SVOA
     Dosage: IN LEFT EYE
     Route: 031
  4. VABYSMO [Suspect]
     Active Substance: FARICIMAB-SVOA
     Dosage: IN LEFT EYE
     Route: 031
  5. EYLEA [Concomitant]
     Active Substance: AFLIBERCEPT
     Dosage: LEFT EYE

REACTIONS (4)
  - Blood pressure increased [Unknown]
  - Scleral haemorrhage [Unknown]
  - Vitreous floaters [Unknown]
  - Hypertension [Not Recovered/Not Resolved]
